FAERS Safety Report 12039624 (Version 1)
Quarter: 2016Q1

REPORT INFORMATION
  Report Type: Report from Study
  Country: BR (occurrence: BR)
  Receive Date: 20160208
  Receipt Date: 20160208
  Transmission Date: 20160526
  Serious: Yes (Hospitalization)
  Sender: FDA-Public Use
  Company Number: PHHY2016BR015957

PATIENT
  Sex: Female
  Weight: 64 kg

DRUGS (1)
  1. EXJADE [Suspect]
     Active Substance: DEFERASIROX
     Indication: IRON OVERLOAD
     Dosage: 15 MG/KG, QD (2 TABLETS OF 500 MG PER DAY)
     Route: 048

REACTIONS (2)
  - Pain [Recovering/Resolving]
  - Serum ferritin increased [Unknown]
